FAERS Safety Report 9009316 (Version 3)
Quarter: 2016Q3

REPORT INFORMATION
  Report Type: Report from Study
  Country: CA (occurrence: CA)
  Receive Date: 20130111
  Receipt Date: 20160914
  Transmission Date: 20161109
  Serious: Yes (Other)
  Sender: FDA-Public Use
  Company Number: CA-UCBSA-069456

PATIENT
  Age: 72 Year
  Sex: Female
  Weight: 57.6 kg

DRUGS (19)
  1. FOLIC ACID. [Concomitant]
     Active Substance: FOLIC ACID
     Indication: RHEUMATOID ARTHRITIS
     Dosage: 5 MG, EV 2 WEEKS(QOW)
     Route: 048
     Dates: start: 2005
  2. PREDNISONE. [Concomitant]
     Active Substance: PREDNISONE
     Dosage: 5 MG IN THE MORNING AND 12.5 MG IN THE EVENNING
  3. SYNTHROID [Concomitant]
     Active Substance: LEVOTHYROXINE SODIUM
     Indication: HYPOTHYROIDISM
     Dosage: .112 MG, ONCE DAILY (QD)
     Route: 048
  4. ALEVE [Concomitant]
     Active Substance: NAPROXEN SODIUM
     Indication: PAIN
     Dosage: MG
     Route: 048
  5. CERTOLIZUMAB PEGOL RA [Suspect]
     Active Substance: CERTOLIZUMAB PEGOL
     Indication: RHEUMATOID ARTHRITIS
     Dosage: 3 TIME, ON HOLD
     Route: 058
     Dates: start: 20121002, end: 20121113
  6. PAXIL [Concomitant]
     Active Substance: PAROXETINE HYDROCHLORIDE
     Indication: DEPRESSION
     Dosage: 40 MG, ONCE DAILY (QD)
     Route: 048
  7. ACTONEL [Concomitant]
     Active Substance: RISEDRONATE SODIUM
     Indication: OSTEOPOROSIS
     Dosage: 35 MG, WEEKLY (QW)
     Route: 048
  8. MTX [Concomitant]
     Active Substance: METHOTREXATE SODIUM
     Dosage: 6 PILLS/ WEEK 15 MG
  9. CRESTOR [Concomitant]
     Active Substance: ROSUVASTATIN CALCIUM
     Indication: HYPERCHOLESTEROLAEMIA
     Dosage: 40 MG, ONCE DAILY (QD)
     Route: 048
  10. AZYTHROMYCINE [Concomitant]
     Indication: MALAISE
     Dosage: 250MG ( 2CO) THE FIRST DAY THEN 250MG QD FOR 4 DAYS
     Dates: start: 20121014, end: 20121018
  11. CERTOLIZUMAB PEGOL RA [Suspect]
     Active Substance: CERTOLIZUMAB PEGOL
     Dosage: 200 MG, EV 2 WEEKS(QOW)
     Route: 058
     Dates: start: 20121127, end: 20121226
  12. CERTOLIZUMAB PEGOL RA [Suspect]
     Active Substance: CERTOLIZUMAB PEGOL
     Dosage: UNK
  13. ENSURE [Concomitant]
     Active Substance: AMINO ACIDS\DEXTROSE\ELECTROLYTES NOS\SOYBEAN OIL\VITAMINS
     Indication: ASTHENIA
  14. MTX [Concomitant]
     Active Substance: METHOTREXATE SODIUM
     Indication: RHEUMATOID ARTHRITIS
     Dosage: 15 MG, WEEKLY (QW)
     Route: 048
     Dates: start: 2005
  15. PREDNISONE. [Concomitant]
     Active Substance: PREDNISONE
     Indication: RHEUMATOID ARTHRITIS
     Dosage: 5 MG, ONCE DAILY (QD)
     Route: 048
  16. AZITHROMYCIN ANHYDROUS. [Concomitant]
     Active Substance: AZITHROMYCIN ANHYDROUS
     Indication: PRODUCT USED FOR UNKNOWN INDICATION
     Dosage: 250 MG FIRST DAY
  17. FLUCONAZOLE. [Concomitant]
     Active Substance: FLUCONAZOLE
     Indication: PRODUCT USED FOR UNKNOWN INDICATION
  18. AZITHROMYCIN ANHYDROUS. [Concomitant]
     Active Substance: AZITHROMYCIN ANHYDROUS
     Dosage: THEN 250 MG QD FOR 4 DAYS
  19. ERYTHROMYCIN. [Concomitant]
     Active Substance: ERYTHROMYCIN
     Indication: PRODUCT USED FOR UNKNOWN INDICATION

REACTIONS (14)
  - Cough [Recovering/Resolving]
  - Bronchitis [Unknown]
  - Clostridium difficile infection [Unknown]
  - Malaise [Unknown]
  - Weight decreased [Unknown]
  - Decreased appetite [Unknown]
  - Diverticulum [Unknown]
  - Fatigue [Not Recovered/Not Resolved]
  - Asthenia [Not Recovered/Not Resolved]
  - Anaemia [Unknown]
  - Oral candidiasis [Not Recovered/Not Resolved]
  - Nasal discharge discolouration [Not Recovered/Not Resolved]
  - Diarrhoea [Unknown]
  - Nasopharyngitis [Unknown]

NARRATIVE: CASE EVENT DATE: 2012
